FAERS Safety Report 9262332 (Version 1)
Quarter: 2013Q2

REPORT INFORMATION
  Report Type: Spontaneous
  Country: GB (occurrence: None)
  Receive Date: 20130425
  Receipt Date: 20130425
  Transmission Date: 20140414
  Serious: Yes (Other)
  Sender: FDA-Public Use
  Company Number: 2013ST000078

PATIENT
  Sex: Female

DRUGS (1)
  1. ZEGERID [Suspect]
     Indication: GASTRIC DISORDER
     Route: 048
     Dates: start: 20120404, end: 20120404

REACTIONS (4)
  - Cyanosis [None]
  - Dyspnoea [None]
  - Drug administration error [None]
  - Pain [None]
